FAERS Safety Report 14098097 (Version 1)
Quarter: 2017Q4

REPORT INFORMATION
  Report Type: Spontaneous
  Country: JP (occurrence: JP)
  Receive Date: 20171016
  Receipt Date: 20171016
  Transmission Date: 20180321
  Serious: Yes (Hospitalization, Other)
  Sender: FDA-Public Use
  Company Number: JP-ALLERGAN-1757660US

PATIENT
  Age: 18 Year
  Sex: Male

DRUGS (2)
  1. AZATHIOPRINE. [Concomitant]
     Active Substance: AZATHIOPRINE
     Indication: COLITIS ULCERATIVE
     Dosage: 75 MG, UNK
     Route: 065
  2. MESALAZINE UNK [Suspect]
     Active Substance: MESALAMINE
     Indication: COLITIS ULCERATIVE
     Dosage: 3.6 G, QD
     Route: 065

REACTIONS (6)
  - Cough [Unknown]
  - Colitis ulcerative [Recovered/Resolved]
  - Pulmonary mass [Recovered/Resolved]
  - Chest pain [Unknown]
  - Lung disorder [Recovered/Resolved]
  - Pyrexia [Unknown]
